FAERS Safety Report 20679486 (Version 1)
Quarter: 2022Q2

REPORT INFORMATION
  Report Type: Spontaneous
  Country: CN (occurrence: CN)
  Receive Date: 20220406
  Receipt Date: 20220406
  Transmission Date: 20220721
  Serious: Yes (Other)
  Sender: FDA-Public Use
  Company Number: CN-AstraZeneca-2022A127076

PATIENT
  Age: 14 Year
  Sex: Female

DRUGS (1)
  1. METOPROLOL [Suspect]
     Active Substance: METOPROLOL
     Indication: Product used for unknown indication
     Dosage: 40-50 TABLETS ONE TIME
     Route: 048
     Dates: start: 20220324, end: 20220324

REACTIONS (1)
  - Intentional overdose [Unknown]
